FAERS Safety Report 25500615 (Version 1)
Quarter: 2025Q3

REPORT INFORMATION
  Report Type: Spontaneous
  Country: CA (occurrence: CA)
  Receive Date: 20250701
  Receipt Date: 20250701
  Transmission Date: 20251021
  Serious: Yes (Hospitalization, Disabling)
  Sender: MYLAN
  Company Number: CA-MYLANLABS-2025M1054487

PATIENT
  Age: 12 Year
  Sex: Female
  Weight: 50 kg

DRUGS (8)
  1. ISOTRETINOIN [Suspect]
     Active Substance: ISOTRETINOIN
     Indication: Acne
     Dosage: 40 MILLIGRAM, QD (1 EVERY 1 DAY)
  2. ISOTRETINOIN [Suspect]
     Active Substance: ISOTRETINOIN
     Dosage: 40 MILLIGRAM, QD (1 EVERY 1 DAY)
     Route: 048
  3. ISOTRETINOIN [Suspect]
     Active Substance: ISOTRETINOIN
     Dosage: 40 MILLIGRAM, QD (1 EVERY 1 DAY)
     Route: 048
  4. ISOTRETINOIN [Suspect]
     Active Substance: ISOTRETINOIN
     Dosage: 40 MILLIGRAM, QD (1 EVERY 1 DAY)
  5. CONCERTA [Suspect]
     Active Substance: METHYLPHENIDATE HYDROCHLORIDE
     Indication: Attention deficit hyperactivity disorder
     Dosage: 18 MILLIGRAM, QD (1 EVERY 1 DAY)
  6. CONCERTA [Suspect]
     Active Substance: METHYLPHENIDATE HYDROCHLORIDE
     Dosage: 18 MILLIGRAM, QD (1 EVERY 1 DAY)
     Route: 048
  7. CONCERTA [Suspect]
     Active Substance: METHYLPHENIDATE HYDROCHLORIDE
     Dosage: 18 MILLIGRAM, QD (1 EVERY 1 DAY)
     Route: 048
  8. CONCERTA [Suspect]
     Active Substance: METHYLPHENIDATE HYDROCHLORIDE
     Dosage: 18 MILLIGRAM, QD (1 EVERY 1 DAY)

REACTIONS (9)
  - Crying [Recovering/Resolving]
  - Blood pressure increased [Recovering/Resolving]
  - Blood urine present [Recovering/Resolving]
  - Conversion disorder [Recovering/Resolving]
  - Fear [Recovering/Resolving]
  - Hallucination, auditory [Recovering/Resolving]
  - Heart rate increased [Recovering/Resolving]
  - Paranoia [Recovering/Resolving]
  - White blood cell count increased [Recovering/Resolving]
